FAERS Safety Report 12476748 (Version 1)
Quarter: 2016Q2

REPORT INFORMATION
  Report Type: Spontaneous
  Country: US (occurrence: US)
  Receive Date: 20160617
  Receipt Date: 20160617
  Transmission Date: 20160815
  Serious: Yes (Other)
  Sender: FDA-Public Use
  Company Number: US-MDT-ADR-2016-01122

PATIENT
  Age: 53 Year
  Sex: Female

DRUGS (3)
  1. BACLOFEN. [Suspect]
     Active Substance: BACLOFEN
     Dosage: 205 MCG/DAY
     Route: 037
  2. PRIALT [Suspect]
     Active Substance: ZICONOTIDE ACETATE
     Dosage: 2.59 MCG/DAY
     Route: 037
  3. FENTANYL. [Suspect]
     Active Substance: FENTANYL
     Dosage: 30 MCG/DAY
     Route: 037

REACTIONS (6)
  - Pruritus [Unknown]
  - Chills [Unknown]
  - Tremor [Unknown]
  - Medical device site pain [Unknown]
  - Drug withdrawal syndrome [Unknown]
  - Hyperhidrosis [Unknown]

NARRATIVE: CASE EVENT DATE: 20160613
